FAERS Safety Report 8245273-2 (Version None)
Quarter: 2012Q1

REPORT INFORMATION
  Report Type: 
  Country: None (occurrence: None)
  Receive Date: 20120329
  Receipt Date: 20120314
  Transmission Date: 20120608
  Serious: Yes (Hospitalization)
  Sender: FDA-Public Use
  Company Number: US-ROCHE-760971

PATIENT
  Age: 55 Year
  Sex: Male
  Weight: 72 kg

DRUGS (25)
  1. PEGINTERFERON ALFA-2A [Suspect]
     Route: 058
     Dates: start: 20100807, end: 20100922
  2. COPEGUS [Suspect]
     Route: 048
     Dates: start: 20110129, end: 20110208
  3. GABAPENTIN [Concomitant]
  4. LOCORTEN-VIOFORM [Concomitant]
     Indication: OTITIS MEDIA
     Dosage: AS REQUIRED
     Dates: start: 20101013, end: 20101018
  5. PROPRANOLOL HYDROCHLORIDE [Concomitant]
     Indication: HEADACHE
  6. IBUPROFEN [Concomitant]
     Indication: MYALGIA
     Dosage: AS REQUIRED
  7. HYDROCORTISONE [Concomitant]
     Indication: RASH
     Dates: start: 20100915, end: 20101207
  8. ZOLPIDEM TARTRATE [Concomitant]
     Indication: INSOMNIA
     Dosage: AS REQUIRED
     Dates: start: 20101209, end: 20110104
  9. FLUOCINONIDE [Concomitant]
     Indication: RASH
  10. PEGINTERFERON ALFA-2A [Suspect]
     Indication: HEPATITIS C
     Dosage: 19/JAN/2011, 74 DAYS
     Route: 058
     Dates: start: 20100525, end: 20100806
  11. TRIAZOLAM [Concomitant]
     Indication: INSOMNIA
  12. PEGINTERFERON ALFA-2A [Suspect]
     Route: 058
     Dates: start: 20100923, end: 20110208
  13. COPEGUS [Suspect]
     Indication: HEPATITIS C
     Route: 048
     Dates: start: 20100525, end: 20110126
  14. RITONAVIR [Suspect]
     Indication: HEPATITIS C
     Dosage: FORM: SOFT GELATIN CAPSULES
     Route: 048
     Dates: start: 20100525, end: 20100818
  15. VICODIN [Concomitant]
     Indication: MYALGIA
     Dosage: STRENGTH 325/5
  16. BISMUTH SUBSALICYLATE IN OIL INJ [Concomitant]
     Indication: STOMATITIS
     Dosage: AS REQUIRED
     Dates: start: 20100903, end: 20100905
  17. CEFUROXIME AXETIL [Concomitant]
     Indication: OTITIS MEDIA
     Dates: start: 20101013, end: 20101016
  18. ABT-450 (HCV PROTEASE INHIBITOR) [Suspect]
     Indication: HEPATITIS C
     Route: 048
     Dates: start: 20100525, end: 20100818
  19. ACETAMINOPHEN [Concomitant]
     Indication: HEADACHE
     Dosage: AS REQUIRED
     Dates: start: 20100612, end: 20101201
  20. CEPHALEXIN MONOHYDRATE [Concomitant]
     Dosage: INDICATION:RIGHT AXILLA
     Dates: start: 20100625, end: 20100704
  21. BACTROBAN [Concomitant]
     Indication: WOUND INFECTION
  22. DIPHENHYDRAMINE HCL [Concomitant]
     Indication: INSOMNIA
     Dosage: DRUG REPORTED: DOZOL, AS REQUIRED
     Dates: start: 20100621, end: 20100621
  23. CITALOPRAM HYDROBROMIDE [Concomitant]
     Indication: DEPRESSION
  24. CHLORMEZANONE [Concomitant]
     Indication: INSOMNIA
     Dosage: AS REQUIRED
     Dates: start: 20100803, end: 20101207
  25. GABAPENTIN [Concomitant]
     Indication: MYALGIA
     Dates: start: 20100813, end: 20100818

REACTIONS (2)
  - DEHYDRATION [None]
  - MIGRAINE [None]
